FAERS Safety Report 24424093 (Version 2)
Quarter: 2024Q4

REPORT INFORMATION
  Report Type: Spontaneous
  Country: JP (occurrence: JP)
  Receive Date: 20241010
  Receipt Date: 20241101
  Transmission Date: 20250114
  Serious: Yes (Death)
  Sender: AKEBIA THERAPEUTICS
  Company Number: JP-IQVIA-JT2024JP000390

PATIENT
  Age: 84 Year
  Sex: Female
  Weight: 30.5 kg

DRUGS (11)
  1. FERRIC CITRATE ANHYDROUS [Suspect]
     Active Substance: FERRIC CITRATE ANHYDROUS
     Indication: Iron deficiency anaemia
     Dosage: 250 MILLIGRAM, BID
     Route: 048
     Dates: end: 20240706
  2. ENARODUSTAT [Suspect]
     Active Substance: ENARODUSTAT
     Indication: Nephrogenic anaemia
     Dosage: 4 MILLIGRAM, QD
     Route: 048
     Dates: start: 20240126, end: 20240705
  3. LANSOPRAZOLE [Concomitant]
     Active Substance: LANSOPRAZOLE
     Indication: Gastrooesophageal reflux disease
     Dosage: 15 MILLIGRAM, QD
     Route: 048
     Dates: end: 20240706
  4. CLOPIDOGREL [Concomitant]
     Active Substance: CLOPIDOGREL BISULFATE
     Indication: Myocardial ischaemia
     Dosage: 75 MILLIGRAM, QD
     Route: 048
     Dates: end: 20240706
  5. EVOCALCET [Concomitant]
     Active Substance: EVOCALCET
     Indication: Hyperparathyroidism secondary
     Dosage: 1 MILLIGRAM, QD
     Route: 048
     Dates: end: 20240706
  6. EVOCALCET [Concomitant]
     Active Substance: EVOCALCET
     Indication: Diabetic nephropathy
  7. SULFASALAZINE [Concomitant]
     Active Substance: SULFASALAZINE
     Indication: Rheumatoid arthritis
     Dosage: 1000 MILLIGRAM, QD
     Route: 048
     Dates: end: 20240706
  8. MENATETRENONE [Concomitant]
     Active Substance: MENATETRENONE
     Indication: Osteoporosis
     Dosage: 15 MILLIGRAM, BID
     Route: 048
     Dates: end: 20240706
  9. CALCIUM SENNOSIDES [Concomitant]
     Active Substance: SENNOSIDES
     Indication: Constipation
     Dosage: 24 MILLIGRAM, QD
     Route: 048
     Dates: end: 20240706
  10. OXAROL [Concomitant]
     Active Substance: MAXACALCITOL
     Indication: Diabetic nephropathy
     Dosage: 10 MICROGRAM, 3 TIMES/WK
     Route: 042
     Dates: end: 20240706
  11. OXAROL [Concomitant]
     Active Substance: MAXACALCITOL
     Indication: Hyperparathyroidism secondary

REACTIONS (3)
  - Hypoglycaemia [Fatal]
  - Altered state of consciousness [Fatal]
  - Inflammation [Fatal]

NARRATIVE: CASE EVENT DATE: 20240701
